FAERS Safety Report 7062439-8 (Version None)
Quarter: 2010Q4

REPORT INFORMATION
  Report Type: 
  Country: None (occurrence: None)
  Receive Date: 20101026
  Receipt Date: 20091102
  Transmission Date: 20110411
  Serious: No
  Sender: FDA-Public Use
  Company Number: US-PFIZER INC-2009293505

PATIENT
  Sex: Male
  Weight: 83.9 kg

DRUGS (3)
  1. LIPITOR [Suspect]
     Indication: BLOOD CHOLESTEROL INCREASED
     Dosage: UNK
     Route: 048
     Dates: end: 20091030
  2. ACCUPRIL [Concomitant]
     Dosage: UNK
  3. HYDROCODONE [Concomitant]
     Dosage: UNK

REACTIONS (1)
  - MUSCLE ENZYME INCREASED [None]
